FAERS Safety Report 7649548-7 (Version None)
Quarter: 2011Q3

REPORT INFORMATION
  Report Type: 
  Country: None (occurrence: None)
  Receive Date: 20110727
  Receipt Date: 20110711
  Transmission Date: 20111222
  Serious: Yes (Other)
  Sender: FDA-Public Use
  Company Number: 2011MA008590

PATIENT
  Age: 41 Year
  Sex: Female

DRUGS (4)
  1. CITALOPRAM HYDROBROMIDE [Suspect]
     Indication: PRODUCT USED FOR UNKNOWN INDICATION
  2. NEUPOGEN [Concomitant]
  3. LORAZEPAM [Concomitant]
  4. LETROZOLE [Concomitant]

REACTIONS (3)
  - THROMBOCYTOPENIA [None]
  - NEUTROPENIA [None]
  - ANAEMIA [None]
